FAERS Safety Report 17259527 (Version 1)
Quarter: 2020Q1

REPORT INFORMATION
  Report Type: Spontaneous
  Country: US (occurrence: US)
  Receive Date: 20200110
  Receipt Date: 20200110
  Transmission Date: 20200409
  Serious: No
  Sender: FDA-Public Use
  Company Number: NVSC2020US005062

PATIENT
  Age: 55 Year
  Sex: Female

DRUGS (2)
  1. TACROLIMUS. [Suspect]
     Active Substance: TACROLIMUS
     Indication: ALCOHOL USE
     Dosage: 1 MG
     Route: 048
     Dates: start: 201904
  2. TACROLIMUS. [Suspect]
     Active Substance: TACROLIMUS
     Indication: TYPE 1 DIABETES MELLITUS

REACTIONS (1)
  - Wrist fracture [Unknown]

NARRATIVE: CASE EVENT DATE: 20191111
